FAERS Safety Report 17164010 (Version 1)
Quarter: 2019Q4

REPORT INFORMATION
  Report Type: Spontaneous
  Country: US (occurrence: US)
  Receive Date: 20191217
  Receipt Date: 20191217
  Transmission Date: 20200122
  Serious: No
  Sender: FDA-Public Use
  Company Number: US-BAYER-2019-226602

PATIENT
  Sex: Female

DRUGS (3)
  1. MIRENA [Suspect]
     Active Substance: LEVONORGESTREL
     Indication: CONTRACEPTION
     Dosage: 20 MCG/24HR, CONT
     Route: 015
     Dates: start: 2018
  2. MIRENA [Suspect]
     Active Substance: LEVONORGESTREL
     Indication: CONTRACEPTION
     Dosage: 20 MCG/24HR, CONT
     Route: 015
     Dates: end: 2018
  3. MIRENA [Suspect]
     Active Substance: LEVONORGESTREL

REACTIONS (5)
  - Amenorrhoea [None]
  - Ovarian cyst [Recovered/Resolved]
  - Alopecia [Not Recovered/Not Resolved]
  - Abdominal pain [Recovered/Resolved]
  - Device use issue [None]

NARRATIVE: CASE EVENT DATE: 2014
